FAERS Safety Report 21073820 (Version 1)
Quarter: 2022Q3

REPORT INFORMATION
  Report Type: Spontaneous
  Country: US (occurrence: US)
  Receive Date: 20220713
  Receipt Date: 20220713
  Transmission Date: 20221027
  Serious: No
  Sender: FDA-Public Use
  Company Number: US-AMRING PHARMACEUTICALS INC.-2022US002470

PATIENT
  Age: 78 Year
  Sex: Female

DRUGS (1)
  1. MESALAMINE RECTAL [Suspect]
     Active Substance: MESALAMINE
     Indication: Crohn^s disease
     Dosage: 1000 MG
     Route: 054
     Dates: start: 202204

REACTIONS (4)
  - Application site pain [Not Recovered/Not Resolved]
  - Rash macular [Not Recovered/Not Resolved]
  - Product packaging difficult to open [Recovered/Resolved]
  - Off label use [Unknown]

NARRATIVE: CASE EVENT DATE: 20220401
